FAERS Safety Report 8775034 (Version 1)
Quarter: 2012Q4

REPORT INFORMATION
  Report Type: 
  Country: US (occurrence: US)
  Receive Date: 20120910
  Receipt Date: 20120910
  Transmission Date: 20130627
  Serious: No
  Sender: FDA-Public Use
  Company Number: US-BAYER-2012-093359

PATIENT
  Age: 91 Year
  Sex: Female
  Weight: 50.79 kg

DRUGS (1)
  1. BAYER ADVANCED ASPIRIN EXTRA STRENGTH [Suspect]
     Indication: ANALGESIC THERAPY
     Dosage: 1 DF, PRN
     Route: 048
     Dates: start: 201207, end: 20120903

REACTIONS (2)
  - Oropharyngeal pain [Not Recovered/Not Resolved]
  - Foreign body [Recovered/Resolved]
